FAERS Safety Report 7325494-3 (Version None)
Quarter: 2011Q1

REPORT INFORMATION
  Report Type: 
  Country: None (occurrence: None)
  Receive Date: 20110302
  Receipt Date: 20110223
  Transmission Date: 20110831
  Serious: Yes (Other)
  Sender: FDA-Public Use
  Company Number: BR-SANOFI-AVENTIS-2011SA012016

PATIENT
  Age: 0 Day
  Sex: Female
  Weight: 4 kg

DRUGS (2)
  1. FOLIC ACID [Concomitant]
     Indication: NUTRITIONAL SUPPORT
     Route: 064
     Dates: start: 20100201, end: 20101207
  2. CLEXANE SYRINGES [Suspect]
     Indication: THROMBOSIS
     Route: 064
     Dates: start: 20101001, end: 20101207

REACTIONS (2)
  - MENINGOMYELOCELE [None]
  - DRUG EXPOSURE DURING PREGNANCY [None]
